FAERS Safety Report 8207324-0 (Version None)
Quarter: 2012Q1

REPORT INFORMATION
  Report Type: 
  Country: None (occurrence: None)
  Receive Date: 20120314
  Receipt Date: 20111216
  Transmission Date: 20120608
  Serious: No
  Sender: FDA-Public Use
  Company Number: US-GLAXOSMITHKLINE-A0958412A

PATIENT
  Age: 33 Year
  Sex: Female

DRUGS (2)
  1. NICORETTE (MINT) [Suspect]
     Indication: EX-TOBACCO USER
     Dates: start: 20111216, end: 20111216
  2. NICODERM CQ [Suspect]
     Indication: EX-TOBACCO USER

REACTIONS (6)
  - HYPERSENSITIVITY [None]
  - ORAL DISCOMFORT [None]
  - THROAT IRRITATION [None]
  - THERMAL BURN [None]
  - EXPIRED DRUG ADMINISTERED [None]
  - APPLICATION SITE NODULE [None]
